FAERS Safety Report 9803570 (Version 2)
Quarter: 2020Q2

REPORT INFORMATION
  Report Type: Spontaneous
  Country: US (occurrence: US)
  Receive Date: 20140108
  Receipt Date: 20200616
  Transmission Date: 20200714
  Serious: Yes (Other)
  Sender: FDA-Public Use
  Company Number: US-BIOMARINAP-US-2014-102200

PATIENT
  Age: 35 Year
  Sex: Male

DRUGS (1)
  1. ALDURAZYME [Suspect]
     Active Substance: LARONIDASE
     Indication: MUCOPOLYSACCHARIDOSIS I
     Dosage: 46.4 MILLIGRAM, QW
     Route: 042

REACTIONS (2)
  - Product storage error [Unknown]
  - Mitral valve stenosis [Not Recovered/Not Resolved]

NARRATIVE: CASE EVENT DATE: 202005
